FAERS Safety Report 20719313 (Version 3)
Quarter: 2022Q3

REPORT INFORMATION
  Report Type: Spontaneous
  Country: JP (occurrence: JP)
  Receive Date: 20220418
  Receipt Date: 20220714
  Transmission Date: 20221027
  Serious: Yes (Hospitalization)
  Sender: FDA-Public Use
  Company Number: JP-GSKNCCC-Case-01467756_AE-56939

PATIENT

DRUGS (8)
  1. SOTROVIMAB [Suspect]
     Active Substance: SOTROVIMAB
     Indication: SARS-CoV-2 test positive
     Dosage: UNK
     Dates: start: 20220406, end: 20220406
  2. ROZEREM [Concomitant]
     Active Substance: RAMELTEON
     Dosage: 8 MG, QD
  3. CLOPIDOGREL BISULFATE [Concomitant]
     Active Substance: CLOPIDOGREL BISULFATE
     Dosage: 75 MG, QD
  4. LANSOPRAZOLE [Concomitant]
     Active Substance: LANSOPRAZOLE
     Dosage: 15 MG, QD
  5. HERBALS [Concomitant]
     Active Substance: HERBALS
     Dosage: 2.5 G, TID
  6. BELSOMRA [Concomitant]
     Active Substance: SUVOREXANT
     Dosage: 15 MG, QD
  7. RISPERDAL [Concomitant]
     Active Substance: RISPERIDONE
     Dosage: 3 MG, TWICE DAILY (1-2)
  8. VALPROATE SODIUM [Concomitant]
     Active Substance: VALPROATE SODIUM
     Dosage: 1000 MG/DAY, BID (600-400)

REACTIONS (6)
  - Hospitalisation [Unknown]
  - Heart rate abnormal [Recovered/Resolved]
  - Blood pressure decreased [Recovering/Resolving]
  - Blood creatine phosphokinase abnormal [Recovering/Resolving]
  - Blood creatine phosphokinase MB abnormal [Unknown]
  - Troponin I abnormal [Unknown]

NARRATIVE: CASE EVENT DATE: 20220406
